FAERS Safety Report 7289190-3 (Version None)
Quarter: 2011Q1

REPORT INFORMATION
  Report Type: 
  Country: None (occurrence: None)
  Receive Date: 20110201
  Receipt Date: 20110118
  Transmission Date: 20110831
  Serious: Yes (Other)
  Sender: FDA-Public Use
  Company Number: 1012-502

PATIENT
  Age: 55 Year
  Sex: Male

DRUGS (1)
  1. ARCALYST [Suspect]
     Indication: CRYOPYRIN ASSOCIATED PERIODIC SYNDROME
     Dates: start: 20080625, end: 20100901

REACTIONS (1)
  - INFECTION [None]
